FAERS Safety Report 6378101-0 (Version None)
Quarter: 2009Q3

REPORT INFORMATION
  Report Type: 
  Country: None (occurrence: None)
  Receive Date: 20090925
  Receipt Date: 20090922
  Transmission Date: 20100115
  Serious: Yes (Other)
  Sender: FDA-Public Use
  Company Number: US-RB-020761-09

PATIENT
  Age: 35 Year
  Sex: Female

DRUGS (1)
  1. SUBOXONE [Suspect]
     Indication: DRUG USE FOR UNKNOWN INDICATION
     Dosage: DOSAGE INFORMATION UNKNOWN
     Route: 065

REACTIONS (7)
  - BALANCE DISORDER [None]
  - BLINDNESS [None]
  - CONVULSION [None]
  - DENTAL CARIES [None]
  - EPILEPSY [None]
  - FATIGUE [None]
  - MULTIPLE SCLEROSIS [None]
